FAERS Safety Report 11753267 (Version 1)
Quarter: 2015Q4

REPORT INFORMATION
  Report Type: Spontaneous
  Country: ES (occurrence: ES)
  Receive Date: 20151119
  Receipt Date: 20151119
  Transmission Date: 20160304
  Serious: Yes (Hospitalization)
  Sender: FDA-Public Use
  Company Number: ES-UCBSA-2015036234

PATIENT
  Age: 90 Year
  Sex: Female

DRUGS (2)
  1. KEPPRA [Suspect]
     Active Substance: LEVETIRACETAM
     Indication: SEIZURE
     Dosage: STRENGTH - 250 MG, UNKNOWN DOSE
     Route: 048
     Dates: start: 20151030, end: 201511
  2. SINTROM [Suspect]
     Active Substance: ACENOCOUMAROL
     Indication: ARRHYTHMIA PROPHYLAXIS
     Dosage: STRENGTH - 1 MG, UNKNOWN DOSE
     Route: 048
     Dates: start: 20130202

REACTIONS (2)
  - Conjunctival haemorrhage [Unknown]
  - Rectal haemorrhage [Unknown]

NARRATIVE: CASE EVENT DATE: 20151108
